FAERS Safety Report 20691331 (Version 3)
Quarter: 2022Q2

REPORT INFORMATION
  Report Type: Report from Study
  Country: CA (occurrence: CA)
  Receive Date: 20220408
  Receipt Date: 20220512
  Transmission Date: 20220721
  Serious: Yes (Other)
  Sender: FDA-Public Use
  Company Number: CA-JNJFOC-20220403822

PATIENT
  Age: 63 Year
  Sex: Female
  Weight: 75.9 kg

DRUGS (2)
  1. REMICADE [Suspect]
     Active Substance: INFLIXIMAB
     Indication: Crohn^s disease
     Route: 042
     Dates: start: 20110911
  2. REMICADE [Suspect]
     Active Substance: INFLIXIMAB
     Dosage: DOSE 800 MG
     Route: 042
     Dates: start: 20180809

REACTIONS (2)
  - Skin cancer [Unknown]
  - Post procedural infection [Not Recovered/Not Resolved]

NARRATIVE: CASE EVENT DATE: 20220301
